FAERS Safety Report 8076930-9 (Version None)
Quarter: 2012Q1

REPORT INFORMATION
  Report Type: 
  Country: None (occurrence: None)
  Receive Date: 20120127
  Receipt Date: 20120117
  Transmission Date: 20120608
  Serious: Yes (Hospitalization)
  Sender: FDA-Public Use
  Company Number: PHHY2012FR004526

PATIENT
  Age: 63 Year
  Sex: Female

DRUGS (2)
  1. LESCOL [Suspect]
     Dosage: 80 MG, ONCE DAILY
     Route: 048
  2. LEVOTHYROXINE SODIUM [Concomitant]

REACTIONS (5)
  - RESTLESS LEGS SYNDROME [None]
  - MENISCUS LESION [None]
  - ARTHRALGIA [None]
  - PAIN IN EXTREMITY [None]
  - FALL [None]
